FAERS Safety Report 9627959 (Version 1)
Quarter: 2013Q4

REPORT INFORMATION
  Report Type: Spontaneous
  Country: CA (occurrence: CA)
  Receive Date: 20131016
  Receipt Date: 20131016
  Transmission Date: 20140711
  Serious: Yes (Other)
  Sender: FDA-Public Use
  Company Number: PHHY2013CA113316

PATIENT
  Age: 36 Year
  Sex: Female

DRUGS (2)
  1. VALPROIC ACID [Suspect]
  2. PHENYTOIN [Suspect]

REACTIONS (19)
  - Prerenal failure [Unknown]
  - Stevens-Johnson syndrome [Unknown]
  - Pyrexia [Unknown]
  - Rash macular [Unknown]
  - Rash pruritic [Unknown]
  - Skin exfoliation [Unknown]
  - Face oedema [Unknown]
  - Oedema peripheral [Unknown]
  - Blister [Unknown]
  - Chills [Unknown]
  - Night sweats [Unknown]
  - Decreased appetite [Unknown]
  - White blood cell count increased [Unknown]
  - Mucous membrane disorder [Unknown]
  - Drug reaction with eosinophilia and systemic symptoms [Unknown]
  - Hepatic enzyme abnormal [Unknown]
  - Eosinophilia [Unknown]
  - Lymphadenopathy [Unknown]
  - Weight decreased [Unknown]
